FAERS Safety Report 4473614-0 (Version None)
Quarter: 2004Q4

REPORT INFORMATION
  Report Type: 
  Country: None (occurrence: None)
  Receive Date: 20040909
  Receipt Date: 20040802
  Transmission Date: 20050328
  Serious: Yes (Hospitalization)
  Sender: FDA-Public Use
  Company Number: F03200400085

PATIENT
  Age: 60 Year
  Sex: Male

DRUGS (6)
  1. ELOXATIN [Suspect]
     Indication: COLORECTAL CANCER METASTATIC
     Dosage: 171 MG OTHER - INTRAVENOUS NOS
     Route: 042
     Dates: start: 20040719, end: 20040719
  2. FLUOROURACIL [Suspect]
     Indication: COLORECTAL CANCER METASTATIC
     Dosage: 804 MG FOLLOWED BY 1206 MG CONTINUOUS INFUSION - INTRAVENOUS NOS
     Route: 042
     Dates: start: 20040719, end: 20040720
  3. LEUCOVORIN CALCIUM [Suspect]
     Indication: COLORECTAL CANCER METASTATIC
     Dosage: INTRAVENOUS NOS
     Route: 042
     Dates: start: 20040719, end: 20040719
  4. ACETAMINOPHEN AND HYDROCODONE BITARTRATE [Concomitant]
  5. DIAZEPAM [Concomitant]
  6. PANTOPRAZOLE SODIUM [Concomitant]

REACTIONS (1)
  - PYREXIA [None]
